FAERS Safety Report 11898664 (Version 1)
Quarter: 2016Q1

REPORT INFORMATION
  Report Type: Spontaneous
  Country: US (occurrence: US)
  Receive Date: 20160108
  Receipt Date: 20160108
  Transmission Date: 20160526
  Serious: Yes (Other)
  Sender: FDA-Public Use
  Company Number: US-APOPHARMA USA, INC.-2015AP015637

PATIENT
  Age: 21 Month
  Sex: Female

DRUGS (3)
  1. TOPOTECAN [Concomitant]
     Active Substance: TOPOTECAN\TOPOTECAN HYDROCHLORIDE
     Indication: CONGENITAL RETINOBLASTOMA
     Dosage: 0.12 MG, OTHER
     Route: 031
  2. ALKERAN [Suspect]
     Active Substance: MELPHALAN
     Dosage: 210 ?G, OTHER
     Route: 031
  3. ALKERAN [Suspect]
     Active Substance: MELPHALAN
     Indication: CONGENITAL RETINOBLASTOMA
     Dosage: 12 MG, OTHER
     Route: 031

REACTIONS (2)
  - Eye excision [Unknown]
  - Vitreous haemorrhage [Unknown]
